FAERS Safety Report 10224104 (Version 1)
Quarter: 2014Q2

REPORT INFORMATION
  Report Type: Spontaneous
  Country: US (occurrence: US)
  Receive Date: 20140609
  Receipt Date: 20140609
  Transmission Date: 20141212
  Serious: Yes (Hospitalization, Other)
  Sender: FDA-Public Use
  Company Number: PHEH2014US011083

PATIENT
  Age: 58 Year
  Sex: Male

DRUGS (9)
  1. EXFORGE HCT [Suspect]
     Dosage: 1 DF, UNK(VALS 120 MG, AMLO 10 MNG, HCTZ 12.5 MG)
  2. LITHOBID [Suspect]
     Dosage: 1500 MG, UNK
  3. LITHOBID [Suspect]
     Dosage: 1650 MG, PER DAY
  4. LAMICTAL [Concomitant]
     Dosage: 200 MG, UNK
  5. CLONAZEPAM [Concomitant]
     Dosage: 1.0 MG, UNK
  6. LEXAPRO [Concomitant]
     Dosage: 20 MG, UNK
  7. ATORVASTATIN CALCIUM [Concomitant]
     Dosage: 10 MG, UNK
  8. VITAMIN D [Concomitant]
     Dosage: 3000 IU, UNK
  9. NAC//ACETYLCYSTEINE [Concomitant]
     Dosage: 240 MG, UNK

REACTIONS (6)
  - Toxicity to various agents [Unknown]
  - Bipolar disorder [Unknown]
  - Hypomania [Unknown]
  - Loss of consciousness [Unknown]
  - Amnesia [Unknown]
  - Confusional state [Unknown]
